FAERS Safety Report 7155076-8 (Version None)
Quarter: 2010Q4

REPORT INFORMATION
  Report Type: 
  Country: None (occurrence: None)
  Receive Date: 20101214
  Receipt Date: 20100205
  Transmission Date: 20110411
  Serious: Yes (Other)
  Sender: FDA-Public Use
  Company Number: US-AMGEN-QUU361360

PATIENT

DRUGS (2)
  1. ENBREL [Suspect]
     Indication: PSORIASIS
     Dosage: 50 MG, 2 TIMES/WK
     Route: 058
     Dates: start: 20090730
  2. ENBREL [Suspect]
     Dosage: 50 MG, 2 TIMES/WK
     Route: 058
     Dates: start: 20090730

REACTIONS (6)
  - CHILLS [None]
  - DEPRESSION [None]
  - FATIGUE [None]
  - MUSCULAR WEAKNESS [None]
  - PARAESTHESIA [None]
  - PSORIASIS [None]
